FAERS Safety Report 15407735 (Version 1)
Quarter: 2018Q3

REPORT INFORMATION
  Report Type: Spontaneous
  Country: US (occurrence: US)
  Receive Date: 20180920
  Receipt Date: 20180920
  Transmission Date: 20181010
  Serious: No
  Sender: FDA-Public Use
  Company Number: US-BAUSCH-BL-2018-002776

PATIENT
  Sex: Male
  Weight: 88 kg

DRUGS (1)
  1. FLUOROURACIL CREAM [Suspect]
     Active Substance: FLUOROURACIL
     Indication: SKIN LESION
     Route: 061

REACTIONS (6)
  - Wound secretion [Recovered/Resolved]
  - Application site pain [Recovered/Resolved]
  - Insomnia [Recovered/Resolved]
  - Application site pruritus [Recovered/Resolved]
  - Product packaging quantity issue [Unknown]
  - Application site irritation [Recovered/Resolved]
